FAERS Safety Report 8003461-4 (Version None)
Quarter: 2011Q4

REPORT INFORMATION
  Report Type: 
  Country: None (occurrence: None)
  Receive Date: 20111222
  Receipt Date: 20111222
  Transmission Date: 20120403
  Serious: No
  Sender: FDA-Public Use
  Company Number: None

PATIENT
  Age: 22 Year
  Sex: Male
  Weight: 70.306 kg

DRUGS (1)
  1. LARIAM [Suspect]
     Indication: MALARIA PROPHYLAXIS
     Dates: start: 19921220, end: 19930620

REACTIONS (4)
  - BALANCE DISORDER [None]
  - MOOD SWINGS [None]
  - SLEEP DISORDER [None]
  - IRRITABILITY [None]
